FAERS Safety Report 10949072 (Version 1)
Quarter: 2015Q1

REPORT INFORMATION
  Report Type: Spontaneous
  Country: JP (occurrence: JP)
  Receive Date: 20150324
  Receipt Date: 20150324
  Transmission Date: 20150721
  Serious: Yes (Death, Hospitalization)
  Sender: FDA-Public Use
  Company Number: JP-ASTELLAS-2006JP000599

PATIENT
  Sex: Male
  Weight: 5 kg

DRUGS (25)
  1. ZOVIRAX ^BURROUGHS^ [Concomitant]
     Indication: PRODUCT USED FOR UNKNOWN INDICATION
     Dosage: UNK, TID
     Route: 042
     Dates: start: 20050211, end: 20050228
  2. FIRSTCIN [Concomitant]
     Active Substance: CEFOZOPRAN HYDROCHLORIDE
     Indication: PRODUCT USED FOR UNKNOWN INDICATION
     Dosage: 0.17 G, THRICE DAILY
     Route: 042
     Dates: start: 20050212, end: 20050223
  3. BUSULFAN [Suspect]
     Active Substance: BUSULFAN
     Indication: BONE MARROW TRANSPLANT
     Dosage: 0.7 MG, 4 TIMES DAILY
     Route: 048
     Dates: start: 20050131, end: 20050203
  4. ENDOXAN [Suspect]
     Active Substance: CYCLOPHOSPHAMIDE
     Indication: BONE MARROW TRANSPLANT
     Route: 041
     Dates: start: 20050205, end: 20050208
  5. AMIKACIN ^BRAUN^ [Concomitant]
     Indication: PRODUCT USED FOR UNKNOWN INDICATION
     Route: 042
     Dates: start: 20050212, end: 20050221
  6. CARBENIN [Concomitant]
     Active Substance: BETAMIPRON\PANIPENEM
     Indication: PRODUCT USED FOR UNKNOWN INDICATION
     Dosage: 0.16 G, TWICE DAILY
     Route: 042
     Dates: start: 20050223, end: 20050307
  7. CARBENIN [Concomitant]
     Active Substance: BETAMIPRON\PANIPENEM
     Dosage: 0.16 G, THRICE DAILY
     Route: 042
     Dates: start: 20050314, end: 20050317
  8. ALBUMIN ^BEHRING^ [Concomitant]
     Indication: PRODUCT USED FOR UNKNOWN INDICATION
     Route: 042
     Dates: start: 20050226, end: 20050310
  9. FLUDARA [Suspect]
     Active Substance: FLUDARABINE PHOSPHATE
     Indication: BONE MARROW TRANSPLANT
     Dosage: 5.4 MG, ONCE DAILY
     Route: 041
     Dates: start: 20050131, end: 20050205
  10. HAPTOGLOBIN [Concomitant]
     Indication: PRODUCT USED FOR UNKNOWN INDICATION
     Route: 042
     Dates: start: 20050228
  11. ANACT C [Suspect]
     Active Substance: PROTEIN C
     Indication: PROTEIN C DEFICIENCY
     Route: 042
     Dates: start: 20050312, end: 20050317
  12. URSO [Concomitant]
     Active Substance: URSODIOL
     Indication: CHOLESTASIS
     Route: 048
     Dates: start: 20050207, end: 20050317
  13. ENDOXAN                            /00021101/ [Suspect]
     Active Substance: CYCLOPHOSPHAMIDE
     Indication: PREMEDICATION
     Route: 041
     Dates: start: 20050205, end: 20050208
  14. BUSULFAN [Suspect]
     Active Substance: BUSULFAN
     Indication: PREMEDICATION
  15. FLUDARA [Suspect]
     Active Substance: FLUDARABINE PHOSPHATE
     Indication: PREMEDICATION
  16. G-CSF [Concomitant]
     Active Substance: GRANULOCYTE COLONY-STIMULATING FACTOR NOS
     Indication: PRODUCT USED FOR UNKNOWN INDICATION
     Dosage: UNK, UNK
     Route: 065
     Dates: start: 2005, end: 2005
  17. NEUART [Concomitant]
     Indication: PRODUCT USED FOR UNKNOWN INDICATION
     Route: 042
     Dates: start: 20050224, end: 20050309
  18. NEU-UP [Concomitant]
     Active Substance: UNSPECIFIED INGREDIENT
     Indication: NEUTROPHIL COUNT DECREASED
     Route: 042
     Dates: start: 20050211, end: 20050317
  19. ZOVIRAX [Concomitant]
     Active Substance: ACYCLOVIR
     Indication: INFECTION PROPHYLAXIS
     Route: 042
     Dates: start: 20050211, end: 20050228
  20. PROGRAF [Suspect]
     Active Substance: TACROLIMUS\TACROLIMUS ANHYDROUS
     Indication: BONE MARROW TRANSPLANT
     Dosage: 0.1 MG, ONCE DAILY
     Route: 041
     Dates: start: 20050209, end: 20050307
  21. GAMMAGARD [Concomitant]
     Active Substance: HUMAN IMMUNOGLOBULIN G
     Indication: IMMUNOGLOBULINS DECREASED
     Route: 042
     Dates: start: 20050209, end: 20050302
  22. METHOTREXATE [Suspect]
     Active Substance: METHOTREXATE
     Indication: PROPHYLAXIS AGAINST GRAFT VERSUS HOST DISEASE
     Route: 042
     Dates: start: 20050211, end: 20050216
  23. HEPARIN [Concomitant]
     Active Substance: HEPARIN SODIUM
     Indication: PROPHYLAXIS
     Route: 042
     Dates: start: 20050124, end: 20050317
  24. ANACT C [Suspect]
     Active Substance: PROTEIN C
     Indication: PROTEIN C DEFICIENCY
     Route: 042
     Dates: start: 20050312, end: 20050317
  25. METHOTREXATE [Suspect]
     Active Substance: METHOTREXATE
     Indication: BONE MARROW TRANSPLANT

REACTIONS (3)
  - Bacterial infection [Recovered/Resolved]
  - Pulmonary haemorrhage [Fatal]
  - Venoocclusive liver disease [Unknown]
